FAERS Safety Report 4679938-6 (Version None)
Quarter: 2005Q2

REPORT INFORMATION
  Report Type: 
  Country: None (occurrence: None)
  Receive Date: 20050531
  Receipt Date: 20050519
  Transmission Date: 20051028
  Serious: Yes (Hospitalization)
  Sender: FDA-Public Use
  Company Number: B0382373A

PATIENT
  Age: 90 Year
  Sex: Male

DRUGS (5)
  1. AUGMENTIN '250' [Suspect]
     Dosage: ORAL
     Route: 048
     Dates: start: 20050331, end: 20050408
  2. TRAMADOL HCL [Suspect]
     Dosage: ORAL
     Route: 048
  3. FUROSEMIDE [Suspect]
     Dosage: ORAL
     Route: 048
  4. SPIRAMYCIN (SPIRAMYCIN) [Suspect]
     Dosage: ORAL
     Route: 048
     Dates: end: 20050409
  5. PANTOPRAZOLE SODIUM [Suspect]
     Dosage: ORAL
     Route: 048

REACTIONS (4)
  - CONDITION AGGRAVATED [None]
  - GASTROINTESTINAL ULCER PERFORATION [None]
  - PURPURA [None]
  - RESPIRATORY DISTRESS [None]
